FAERS Safety Report 10212934 (Version 2)
Quarter: 2014Q2

REPORT INFORMATION
  Report Type: Spontaneous
  Country: JP (occurrence: JP)
  Receive Date: 20140602
  Receipt Date: 20140610
  Transmission Date: 20141212
  Serious: Yes (Disabling)
  Sender: FDA-Public Use
  Company Number: JP-AMGEN-JPNSP2014040350

PATIENT
  Age: 55 Year
  Sex: Female
  Weight: 33 kg

DRUGS (8)
  1. PRALIA [Suspect]
     Indication: OSTEOPOROSIS
     Dosage: 60 MG, UNK
     Route: 058
     Dates: start: 20140218, end: 20140218
  2. PENTASA [Concomitant]
     Indication: CROHN^S DISEASE
     Dosage: 1000 MG, TID
     Route: 048
     Dates: start: 200906
  3. URSO                               /00465701/ [Concomitant]
     Indication: LIVER DISORDER
     Dosage: 100 MG, TID
     Route: 048
     Dates: start: 20111125
  4. PANCRELIPASE [Concomitant]
     Indication: PANCREATIC INSUFFICIENCY
     Dosage: 300 MG, TID
     Route: 048
     Dates: start: 20120807
  5. DEPAS [Concomitant]
     Indication: INSOMNIA
     Dosage: 0.5 MG, QD
     Route: 048
     Dates: start: 19990703
  6. GASTER D [Concomitant]
     Indication: CROHN^S DISEASE
     Dosage: 20 MG, QD
     Route: 048
     Dates: start: 19990728
  7. DENOTAS [Concomitant]
     Indication: OSTEOPOROSIS
     Dosage: 2 DF, QD
     Route: 048
     Dates: start: 20140218
  8. ACETAMINOPHEN [Concomitant]
     Indication: OSTEOPOROSIS
     Dosage: 600 MG, TID
     Route: 048
     Dates: start: 20140212, end: 20140304

REACTIONS (2)
  - Hypophosphataemia [Recovering/Resolving]
  - Hypocalcaemia [Recovering/Resolving]
